FAERS Safety Report 17292689 (Version 1)
Quarter: 2020Q1

REPORT INFORMATION
  Report Type: Spontaneous
  Country: CN (occurrence: CN)
  Receive Date: 20200121
  Receipt Date: 20200121
  Transmission Date: 20200409
  Serious: Yes (Life-Threatening, Other)
  Sender: FDA-Public Use
  Company Number: CN-BAYER-2020-004502

PATIENT
  Age: 67 Year
  Sex: Female
  Weight: 65 kg

DRUGS (1)
  1. IOPROMIDE. [Suspect]
     Active Substance: IOPROMIDE
     Indication: ANGIOCARDIOGRAM
     Dosage: 120 ML, ONCE
     Route: 013
     Dates: start: 20191224, end: 20191224

REACTIONS (4)
  - Hyperhidrosis [Recovering/Resolving]
  - Hypotension [Recovered/Resolved]
  - Dizziness [Recovering/Resolving]
  - Feeling hot [Recovering/Resolving]

NARRATIVE: CASE EVENT DATE: 20191224
